FAERS Safety Report 17396925 (Version 1)
Quarter: 2020Q1

REPORT INFORMATION
  Report Type: Spontaneous
  Country: US (occurrence: US)
  Receive Date: 20200210
  Receipt Date: 20200210
  Transmission Date: 20200409
  Serious: No
  Sender: FDA-Public Use
  Company Number: US-TEVA-2020-US-1182241

PATIENT

DRUGS (1)
  1. CLONAZEPAM. [Suspect]
     Active Substance: CLONAZEPAM
     Dosage: ROUND YELLOW TABLET
     Route: 065

REACTIONS (3)
  - Lethargy [Unknown]
  - Disturbance in attention [Unknown]
  - Somnolence [Unknown]
